FAERS Safety Report 23447102 (Version 1)
Quarter: 2024Q1

REPORT INFORMATION
  Report Type: Spontaneous
  Country: US (occurrence: None)
  Receive Date: 20240126
  Receipt Date: 20240126
  Transmission Date: 20240410
  Serious: No
  Sender: FDA-Public Use
  Company Number: None

PATIENT
  Age: 75 Year
  Sex: Female
  Weight: 57.15 kg

DRUGS (1)
  1. NITROFURANTOIN MONOHYDRATE MACROCRYSTALS [Suspect]
     Active Substance: NITROFURANTOIN\NITROFURANTOIN MONOHYDRATE
     Indication: Urinary tract infection
     Dosage: OTHER QUANTITY : 1 CAPSULE(S);?FREQUENCY : TWICE A DAY;?
     Route: 048
     Dates: start: 20240117, end: 20240121

REACTIONS (8)
  - Fall [None]
  - Nausea [None]
  - Headache [None]
  - Dizziness [None]
  - Fatigue [None]
  - Vomiting [None]
  - Therapy cessation [None]
  - Mobility decreased [None]

NARRATIVE: CASE EVENT DATE: 20240118
